FAERS Safety Report 13571218 (Version 1)
Quarter: 2017Q2

REPORT INFORMATION
  Report Type: Spontaneous
  Country: US (occurrence: US)
  Receive Date: 20170523
  Receipt Date: 20170523
  Transmission Date: 20170830
  Serious: No
  Sender: FDA-Public Use
  Company Number: US-TEVA-770089ACC

PATIENT
  Sex: Female

DRUGS (3)
  1. IBUPROFEN. [Concomitant]
     Active Substance: IBUPROFEN
  2. HYDROMORPHONE HYDROCHLORIDE EXTENDED-RELEASE [Suspect]
     Active Substance: HYDROMORPHONE HYDROCHLORIDE
     Indication: BREAKTHROUGH PAIN
     Dosage: 16 MILLIGRAM DAILY;
     Dates: start: 20170422
  3. HYDROMORPHONE ER (NON TEVA) [Suspect]
     Active Substance: HYDROMORPHONE
     Indication: PAIN

REACTIONS (2)
  - Product substitution issue [None]
  - Drug ineffective [Unknown]

NARRATIVE: CASE EVENT DATE: 2017
